FAERS Safety Report 15787866 (Version 1)
Quarter: 2019Q1

REPORT INFORMATION
  Report Type: Report from Study
  Country: None (occurrence: US)
  Receive Date: 20190104
  Receipt Date: 20190104
  Transmission Date: 20190417
  Serious: Yes (Other)
  Sender: FDA-Public Use
  Company Number: CA-ABBVIE-18K-028-2278774-00

PATIENT
  Age: 54 Year
  Sex: Female

DRUGS (2)
  1. HUMIRA [Suspect]
     Active Substance: ADALIMUMAB
     Indication: COLITIS ULCERATIVE
     Route: 058
     Dates: start: 20170626, end: 20180216
  2. HUMIRA [Suspect]
     Active Substance: ADALIMUMAB
     Route: 058
     Dates: start: 2018, end: 20181228

REACTIONS (13)
  - Anal haemorrhage [Not Recovered/Not Resolved]
  - Urinary tract infection [Recovering/Resolving]
  - Anal prolapse [Not Recovered/Not Resolved]
  - Asthenia [Not Recovered/Not Resolved]
  - Drug level changed [Unknown]
  - Neoplasm [Not Recovered/Not Resolved]
  - Osteonecrosis [Unknown]
  - Colitis ulcerative [Recovered/Resolved]
  - Sinusitis [Recovering/Resolving]
  - Fatigue [Not Recovered/Not Resolved]
  - Anal inflammation [Not Recovered/Not Resolved]
  - Depression [Not Recovered/Not Resolved]
  - Haemoglobin decreased [Not Recovered/Not Resolved]

NARRATIVE: CASE EVENT DATE: 2017
